FAERS Safety Report 9425678 (Version 3)
Quarter: 2013Q4

REPORT INFORMATION
  Report Type: Spontaneous
  Country: CO (occurrence: CO)
  Receive Date: 20130729
  Receipt Date: 20131126
  Transmission Date: 20140711
  Serious: Yes (Other)
  Sender: FDA-Public Use
  Company Number: CO-BAXTER-2013BAX029206

PATIENT
  Age: 66 Year
  Sex: Female

DRUGS (1)
  1. TISSUCOL KIT ADHESIVO BIOL?GICO DE DOS COMPONENTES [Suspect]
     Indication: FISTULA REPAIR
     Dates: start: 20130426, end: 20130426

REACTIONS (1)
  - Drug ineffective [Recovered/Resolved]
